FAERS Safety Report 9298415 (Version 1)
Quarter: 2013Q1

REPORT INFORMATION
  Report Type: Spontaneous
  Country: US (occurrence: None)
  Receive Date: 20121227
  Receipt Date: 20121227
  Transmission Date: 20140127
  Serious: No
  Sender: FDA-Public Use
  Company Number: PHEH2012US019346

PATIENT
  Age: 71 Year
  Sex: Male
  Weight: 77.1 kg

DRUGS (5)
  1. AFINITOR [Suspect]
     Indication: PANCREATIC NEUROENDOCRINE TUMOUR
     Route: 048
     Dates: end: 20120917
  2. FLOMAX (TAMSULOSIN HYDROCHLORIDE) [Concomitant]
  3. MAGNESIUM (MAGNESIUM) [Concomitant]
  4. LISINOPRIL (LISINOPRIL) [Concomitant]
  5. OMEPRAZOLE (OMEPRAZOLE) [Concomitant]

REACTIONS (3)
  - White blood cell count decreased [None]
  - Epistaxis [None]
  - Thrombocytopenia [None]
